FAERS Safety Report 16771290 (Version 1)
Quarter: 2019Q3

REPORT INFORMATION
  Report Type: Other
  Country: US (occurrence: US)
  Receive Date: 20190904
  Receipt Date: 20190904
  Transmission Date: 20191005
  Serious: No
  Sender: FDA-Public Use
  Company Number: US-AMAG PHARMACEUTICALS, INC.-AMAG201904154

PATIENT
  Age: 38 Year
  Sex: Female
  Weight: 59.47 kg

DRUGS (1)
  1. MAKENA [Suspect]
     Active Substance: HYDROXYPROGESTERONE CAPROATE
     Indication: PREMATURE DELIVERY
     Dosage: 250 MG/ML, WEEKLY
     Route: 058
     Dates: start: 20190715

REACTIONS (8)
  - Vaginal discharge [Recovering/Resolving]
  - Injection site pain [Recovered/Resolved]
  - Pelvic discomfort [Not Recovered/Not Resolved]
  - Vulvovaginal discomfort [Not Recovered/Not Resolved]
  - Bone pain [Recovered/Resolved]
  - Hypoaesthesia [Recovered/Resolved]
  - Cold sweat [Recovered/Resolved]
  - Injection site discomfort [Not Recovered/Not Resolved]

NARRATIVE: CASE EVENT DATE: 20190715
